FAERS Safety Report 17168889 (Version 1)
Quarter: 2019Q4

REPORT INFORMATION
  Report Type: Report from Study
  Country: DE (occurrence: DE)
  Receive Date: 20191218
  Receipt Date: 20191218
  Transmission Date: 20200122
  Serious: Yes (Hospitalization)
  Sender: FDA-Public Use
  Company Number: DE-TEVA-2018-DE-909000

PATIENT
  Sex: Female

DRUGS (9)
  1. RITUXIMAB. [Suspect]
     Active Substance: RITUXIMAB
     Indication: RHEUMATOID ARTHRITIS
     Dosage: MOST RECENT DOSE PRIOR TO SERIOUS ADVERSE EVENT: 10/NOV/2016
     Route: 065
  2. VALSARTAN. [Concomitant]
     Active Substance: VALSARTAN
     Route: 065
  3. LANTAREL [Concomitant]
     Active Substance: METHOTREXATE SODIUM
     Route: 065
  4. ALENDRONAT [Concomitant]
     Active Substance: ALENDRONATE SODIUM
     Route: 065
  5. LEFLUNOMID [Suspect]
     Active Substance: LEFLUNOMIDE
     Indication: RHEUMATOID ARTHRITIS
     Route: 065
     Dates: end: 201705
  6. EUTHYROX [Concomitant]
     Active Substance: LEVOTHYROXINE SODIUM
     Route: 065
  7. VIGANTOLETTEN [Concomitant]
     Active Substance: CHOLECALCIFEROL
     Route: 065
  8. PANTOZOL [Concomitant]
     Active Substance: PANTOPRAZOLE SODIUM
     Route: 065
  9. BISOPROLOL [Concomitant]
     Active Substance: BISOPROLOL

REACTIONS (4)
  - Infection susceptibility increased [Recovered/Resolved]
  - Alopecia [Unknown]
  - Tracheobronchitis [Recovered/Resolved]
  - Herpes simplex oesophagitis [Recovered/Resolved]

NARRATIVE: CASE EVENT DATE: 201702
